FAERS Safety Report 19202641 (Version 1)
Quarter: 2021Q2

REPORT INFORMATION
  Report Type: Spontaneous
  Country: CN (occurrence: CN)
  Receive Date: 20210430
  Receipt Date: 20210430
  Transmission Date: 20210717
  Serious: Yes (Death)
  Sender: FDA-Public Use
  Company Number: CN-CELGENEUS-CHN-20210407303

PATIENT
  Age: 56 Year

DRUGS (6)
  1. TISLELIZUMAB [Concomitant]
     Active Substance: TISLELIZUMAB
     Indication: B-CELL LYMPHOMA
     Route: 041
  2. TISLELIZUMAB [Concomitant]
     Active Substance: TISLELIZUMAB
     Route: 041
     Dates: start: 202003
  3. ZOPICLONE [Concomitant]
     Active Substance: ZOPICLONE
     Indication: INSOMNIA
     Route: 065
  4. AZACITIDINE. [Suspect]
     Active Substance: AZACITIDINE
     Indication: B-CELL LYMPHOMA
     Route: 058
  5. AZACITIDINE. [Suspect]
     Active Substance: AZACITIDINE
     Route: 058
     Dates: start: 202003
  6. ESTAZOLAM. [Concomitant]
     Active Substance: ESTAZOLAM
     Indication: INSOMNIA
     Route: 065

REACTIONS (1)
  - Graft versus host disease [Fatal]
